FAERS Safety Report 22707846 (Version 4)
Quarter: 2023Q4

REPORT INFORMATION
  Report Type: Spontaneous
  Country: JP (occurrence: JP)
  Receive Date: 20230714
  Receipt Date: 20231123
  Transmission Date: 20240109
  Serious: Yes (Other)
  Sender: FDA-Public Use
  Company Number: JP-NEUROCRINE BIOSCIENCES INC.-2023NBI05937

PATIENT
  Age: 22 Year
  Sex: Female

DRUGS (5)
  1. VALBENAZINE [Suspect]
     Active Substance: VALBENAZINE
     Indication: Tardive dyskinesia
     Dosage: 40 MILLIGRAM, QD
     Route: 048
     Dates: start: 20230626, end: 20230701
  2. RISPERIDONE [Concomitant]
     Active Substance: RISPERIDONE
     Indication: Schizophrenia
     Dosage: UNK
     Dates: start: 20210521, end: 20230706
  3. BIO-THREE [Concomitant]
     Active Substance: HERBALS
     Indication: Faeces soft
     Dosage: UNK
     Dates: start: 20230711
  4. RIVOTRIL [Concomitant]
     Active Substance: CLONAZEPAM
     Indication: Tremor
     Dosage: UNK
  5. PERICIAZINE [Concomitant]
     Active Substance: PERICIAZINE
     Indication: Schizophrenia
     Dosage: UNK

REACTIONS (3)
  - Suicide attempt [Recovering/Resolving]
  - Malaise [Recovering/Resolving]
  - Somnolence [Unknown]

NARRATIVE: CASE EVENT DATE: 20230629
